FAERS Safety Report 5675573-1 (Version None)
Quarter: 2008Q1

REPORT INFORMATION
  Report Type: 
  Country: None (occurrence: None)
  Receive Date: 20080321
  Receipt Date: 20080312
  Transmission Date: 20080703
  Serious: Yes (Hospitalization)
  Sender: FDA-Public Use
  Company Number: BE-JNJFOC-20080302917

PATIENT
  Sex: Male

DRUGS (1)
  1. TAVANIC [Suspect]
     Indication: BRONCHITIS
     Route: 048

REACTIONS (1)
  - BRONCHOSPASM [None]
